FAERS Safety Report 21070806 (Version 1)
Quarter: 2022Q3

REPORT INFORMATION
  Report Type: Spontaneous
  Country: CN (occurrence: CN)
  Receive Date: 20220712
  Receipt Date: 20220712
  Transmission Date: 20221027
  Serious: Yes (Other)
  Sender: FDA-Public Use
  Company Number: CN-NOVARTISPH-NVSC2022CN156110

PATIENT
  Sex: Male

DRUGS (1)
  1. TEGRETOL [Suspect]
     Active Substance: CARBAMAZEPINE
     Indication: Product used for unknown indication
     Dosage: 3 DOSAGE FORM, (ONE TABLET AT MORNING, HALF A TABLET AT AFTERNOON AND ONE AND A HALF TABLETS AT NIGH
     Route: 048

REACTIONS (10)
  - Epilepsy [Unknown]
  - Seizure [Unknown]
  - Loss of consciousness [Unknown]
  - Cerebral infarction [Unknown]
  - Hypertension [Unknown]
  - Disorganised speech [Unknown]
  - Gait disturbance [Unknown]
  - Insomnia [Unknown]
  - Urinary incontinence [Unknown]
  - Defaecation disorder [Unknown]

NARRATIVE: CASE EVENT DATE: 20211201
